FAERS Safety Report 12578484 (Version 1)
Quarter: 2016Q3

REPORT INFORMATION
  Report Type: Spontaneous
  Country: US (occurrence: None)
  Receive Date: 20160720
  Receipt Date: 20160720
  Transmission Date: 20161109
  Serious: Yes (Death)
  Sender: FDA-Public Use
  Company Number: None

PATIENT
  Age: 24 Year
  Sex: Female
  Weight: 62 kg

DRUGS (1)
  1. TOCILIZUMAB [Suspect]
     Active Substance: TOCILIZUMAB
     Indication: STILL^S DISEASE ADULT ONSET
     Dosage: (NOT OTHERWISE SPECIFIED)
     Route: 042
     Dates: start: 20151201, end: 20160614

REACTIONS (4)
  - Hepatic encephalopathy [None]
  - Brain oedema [None]
  - Sepsis [None]
  - Multiple organ dysfunction syndrome [None]
